FAERS Safety Report 25859925 (Version 2)
Quarter: 2025Q4

REPORT INFORMATION
  Report Type: Spontaneous
  Country: BR (occurrence: BR)
  Receive Date: 20250929
  Receipt Date: 20251005
  Transmission Date: 20260118
  Serious: Yes (Hospitalization)
  Sender: KYOWA
  Company Number: BR-KYOWAKIRIN-2025KK018575

PATIENT

DRUGS (2)
  1. CRYSVITA [Suspect]
     Active Substance: BUROSUMAB-TWZA
     Indication: Hereditary hypophosphataemic rickets
     Dosage: 10 MILLIGRAM, QOW
     Route: 058
     Dates: start: 20250903
  2. CRYSVITA [Suspect]
     Active Substance: BUROSUMAB-TWZA
     Dosage: 10 MILLIGRAM, QOW
     Route: 058
     Dates: start: 202505

REACTIONS (4)
  - Rhinorrhoea [Recovering/Resolving]
  - Pyrexia [Recovered/Resolved]
  - Cough [Recovering/Resolving]
  - Rash [Recovering/Resolving]

NARRATIVE: CASE EVENT DATE: 20250910
